FAERS Safety Report 10415061 (Version 2)
Quarter: 2015Q2

REPORT INFORMATION
  Report Type: Spontaneous
  Country: US (occurrence: None)
  Receive Date: 20140514
  Receipt Date: 20150515
  Transmission Date: 20150821
  Serious: Yes (Hospitalization)
  Sender: FDA-Public Use
  Company Number: 111019U

PATIENT
  Age: 32 Year
  Sex: Male
  Weight: 90.7 kg

DRUGS (3)
  1. CIMZIA [Suspect]
     Active Substance: CERTOLIZUMAB PEGOL
     Indication: CROHN^S DISEASE
     Dosage: 1X/4 WEEKS, EXPIRY APR/2016
     Dates: start: 20121026
  2. IRON (IRON) [Concomitant]
     Active Substance: IRON
  3. ENTOCORT (BUDESONIDE) [Concomitant]

REACTIONS (1)
  - Crohn^s disease [None]

NARRATIVE: CASE EVENT DATE: 20140105
